FAERS Safety Report 19742992 (Version 1)
Quarter: 2021Q3

REPORT INFORMATION
  Report Type: Other
  Country: JP (occurrence: JP)
  Receive Date: 20210825
  Receipt Date: 20210825
  Transmission Date: 20211014
  Serious: Yes (Other)
  Sender: FDA-Public Use
  Company Number: JP-NUVO PHARMACEUTICALS INC-2115608

PATIENT
  Age: 65 Year
  Sex: Male

DRUGS (2)
  1. OXYCODONE HYDROCHLORIDE. [Suspect]
     Active Substance: OXYCODONE HYDROCHLORIDE
     Indication: CHEST PAIN
     Route: 048
  2. METHADONE [Interacting]
     Active Substance: METHADONE HYDROCHLORIDE
     Route: 065

REACTIONS (4)
  - Drug interaction [Unknown]
  - Condition aggravated [Unknown]
  - Delirium [Unknown]
  - Drug ineffective [Unknown]
